FAERS Safety Report 10003771 (Version 1)
Quarter: 2014Q1

REPORT INFORMATION
  Report Type: Report from Study
  Country: US (occurrence: US)
  Receive Date: 20140312
  Receipt Date: 20140312
  Transmission Date: 20141002
  Serious: Yes (Hospitalization)
  Sender: FDA-Public Use
  Company Number: US-ABBVIE-14P-163-1209700-00

PATIENT
  Age: 53 Year
  Sex: Female
  Weight: 54.93 kg

DRUGS (17)
  1. HUMIRA [Suspect]
     Indication: RHEUMATOID ARTHRITIS
     Route: 058
     Dates: start: 201310
  2. METHOTREXATE [Concomitant]
     Indication: RHEUMATOID ARTHRITIS
     Dates: end: 201402
  3. METHOTREXATE [Concomitant]
     Dates: start: 201402
  4. APRISO [Concomitant]
     Indication: CROHN^S DISEASE
  5. PENTASSA [Concomitant]
     Indication: CROHN^S DISEASE
  6. ABILIFY [Concomitant]
     Indication: BIPOLAR DISORDER
  7. CYMBALTA [Concomitant]
     Indication: BIPOLAR DISORDER
  8. VALIUM [Concomitant]
     Indication: ANXIETY
  9. FENTANYL PATCHES [Concomitant]
     Indication: PANCREATITIS CHRONIC
  10. REGLAN [Concomitant]
     Indication: GASTROOESOPHAGEAL REFLUX DISEASE
  11. AMBIEN [Concomitant]
     Indication: INSOMNIA
  12. OXYCODONE [Concomitant]
     Indication: PAIN
  13. OMEPRAZOLE [Concomitant]
     Indication: GASTROOESOPHAGEAL REFLUX DISEASE
  14. ZOFRAN [Concomitant]
     Indication: NAUSEA
  15. TOVIAZ [Concomitant]
     Indication: URINARY INCONTINENCE
  16. ENALAPRIL MALEATE [Concomitant]
     Indication: HYPERTENSION
  17. FOLIC ACID [Concomitant]
     Indication: VITAMIN SUPPLEMENTATION

REACTIONS (7)
  - Hyponatraemia [Recovered/Resolved]
  - Dyspnoea [Recovered/Resolved]
  - Pyrexia [Recovered/Resolved]
  - Pancreatitis [Recovered/Resolved]
  - Influenza [Recovered/Resolved]
  - Pneumonia [Recovered/Resolved]
  - Sepsis [Recovered/Resolved]
